FAERS Safety Report 8131493-4 (Version None)
Quarter: 2012Q1

REPORT INFORMATION
  Report Type: 
  Country: None (occurrence: None)
  Receive Date: 20120213
  Receipt Date: 20120206
  Transmission Date: 20120608
  Serious: Yes (Hospitalization, Congenital Anomaly)
  Sender: FDA-Public Use
  Company Number: US-JNJFOC-20111203516

PATIENT
  Sex: Male

DRUGS (5)
  1. CARBAMAZEPINE [Suspect]
     Indication: FOETAL EXPOSURE DURING PREGNANCY
     Route: 064
  2. TEGRETOL [Suspect]
     Indication: FOETAL EXPOSURE DURING PREGNANCY
     Route: 064
  3. BICILLIN L-A [Suspect]
     Indication: FOETAL EXPOSURE DURING PREGNANCY
     Route: 064
  4. TOPAMAX [Suspect]
     Indication: FOETAL EXPOSURE DURING PREGNANCY
     Route: 064
     Dates: start: 20070901, end: 20110501
  5. KEPPRA [Suspect]
     Indication: FOETAL EXPOSURE DURING PREGNANCY
     Route: 064

REACTIONS (7)
  - LIMB REDUCTION DEFECT [None]
  - HYPOSPADIAS [None]
  - PHALANGEAL AGENESIS [None]
  - CLEFT PALATE [None]
  - ATRIAL SEPTAL DEFECT [None]
  - VENTRICULAR SEPTAL DEFECT [None]
  - PATENT DUCTUS ARTERIOSUS [None]
